FAERS Safety Report 18904881 (Version 1)
Quarter: 2021Q1

REPORT INFORMATION
  Report Type: Spontaneous
  Country: AU (occurrence: AU)
  Receive Date: 20210217
  Receipt Date: 20210217
  Transmission Date: 20210420
  Serious: Yes (Other)
  Sender: FDA-Public Use
  Company Number: AU-TITAN PHARMACEUTICALS-2021TAN00036

PATIENT
  Age: 62 Year
  Sex: Female

DRUGS (10)
  1. KETAMINE [Concomitant]
     Active Substance: KETAMINE
     Dosage: UNK
     Route: 065
     Dates: start: 201410
  2. BUPRENORPHINE. [Suspect]
     Active Substance: BUPRENORPHINE
     Dosage: 6 MG AT 102 AND SLOWLY TO 32 MG OVER SUBSEQUENT WEEK
     Route: 060
     Dates: start: 2017
  3. BUPRENORPHINE. [Suspect]
     Active Substance: BUPRENORPHINE
     Indication: DRUG USE DISORDER
     Dosage: UNK
     Route: 060
     Dates: start: 201403
  4. BUPRENORPHINE. [Suspect]
     Active Substance: BUPRENORPHINE
     Indication: DRUG USE DISORDER
     Dosage: UNK
     Route: 062
     Dates: start: 201410
  5. CLONIDINE. [Concomitant]
     Active Substance: CLONIDINE
     Dosage: 300?600 MCG/DAY; 3 TIMES PER DAY
     Route: 048
     Dates: start: 201403
  6. CLONIDINE. [Concomitant]
     Active Substance: CLONIDINE
     Dosage: TWICE A DAY, TOTAL DOSES OF 100 MCG/DAY
     Route: 048
     Dates: start: 201410
  7. BUPRENORPHINE. [Suspect]
     Active Substance: BUPRENORPHINE
     Dosage: 4 MG
     Route: 060
     Dates: start: 2017
  8. KETAMINE [Concomitant]
     Active Substance: KETAMINE
     Dosage: 6 MG/HR
     Route: 065
     Dates: start: 201403
  9. BUPRENORPHINE. [Suspect]
     Active Substance: BUPRENORPHINE
     Dosage: 2 MG AT 32 H AND AGAIN AT 34 H
     Route: 060
     Dates: start: 2017
  10. KETAMINE [Concomitant]
     Active Substance: KETAMINE
     Dosage: 2 MG/HR AND INCREASED UP TO 24 MG/HR OVER 2 DAYS
     Route: 065
     Dates: start: 2017

REACTIONS (1)
  - Stress cardiomyopathy [Recovered/Resolved]
